FAERS Safety Report 4673077-6 (Version None)
Quarter: 2005Q2

REPORT INFORMATION
  Report Type: 
  Country: None (occurrence: None)
  Receive Date: 20050523
  Receipt Date: 20050512
  Transmission Date: 20051028
  Serious: Yes (Hospitalization)
  Sender: FDA-Public Use
  Company Number: 2005-05-0572

PATIENT
  Age: 91 Year
  Sex: Male

DRUGS (5)
  1. EULEXINE (FLUTAMIDE) TABLETS (LIKE EULEXIN) [Suspect]
     Indication: PROSTATE CANCER
     Dosage: 250 MG TID ORAL
     Route: 048
     Dates: start: 20041223, end: 20050121
  2. SERESTA [Concomitant]
  3. LEUPRORELIN INJECTABLE SUSPENSION [Concomitant]
  4. MEMANTINE [Concomitant]
  5. DAFALGAN [Concomitant]

REACTIONS (8)
  - CATHETER RELATED INFECTION [None]
  - CHOLELITHIASIS [None]
  - CHOLESTASIS [None]
  - CYTOLYTIC HEPATITIS [None]
  - HEPATOTOXICITY [None]
  - INFECTION [None]
  - INFLAMMATION [None]
  - URINARY TRACT INFECTION [None]
